FAERS Safety Report 17890069 (Version 1)
Quarter: 2020Q2

REPORT INFORMATION
  Report Type: Spontaneous
  Country: US (occurrence: US)
  Receive Date: 20200612
  Receipt Date: 20200612
  Transmission Date: 20200714
  Serious: Yes (Hospitalization)
  Sender: FDA-Public Use
  Company Number: US-MYLANLABS-2020M1056072

PATIENT
  Age: 59 Year
  Sex: Female

DRUGS (3)
  1. APIXABAN [Suspect]
     Active Substance: APIXABAN
     Indication: ATRIAL FIBRILLATION
     Dosage: 5 MILLIGRAM, BID
     Route: 065
  2. HEPARIN [Suspect]
     Active Substance: HEPARIN SODIUM
     Indication: ANTICOAGULANT THERAPY
     Dosage: 4 HOURS AFTER THE DISCONTINUATION OF APIXABAN, SHE WAS BRIDGED TO HEPARIN DRIP;..
     Route: 041
  3. HEPARIN [Suspect]
     Active Substance: HEPARIN SODIUM
     Dosage: INFUSION

REACTIONS (5)
  - Slow response to stimuli [Recovering/Resolving]
  - Tachycardia [Recovering/Resolving]
  - Shock haemorrhagic [Recovering/Resolving]
  - Haemodynamic instability [Recovering/Resolving]
  - Hypotension [Recovering/Resolving]
